FAERS Safety Report 7291445-3 (Version None)
Quarter: 2011Q1

REPORT INFORMATION
  Report Type: 
  Country: None (occurrence: None)
  Receive Date: 20110214
  Receipt Date: 20110204
  Transmission Date: 20110831
  Serious: Yes (Death, Hospitalization, Other)
  Sender: FDA-Public Use
  Company Number: US-GENZYME-CLOF-1001421

PATIENT
  Age: 80 Year
  Sex: Male

DRUGS (1)
  1. CLOLAR [Suspect]
     Indication: LYMPHOMA
     Dosage: 4 MG/M2, QDX5
     Route: 042
     Dates: start: 20080603, end: 20080607

REACTIONS (4)
  - LEUKOPENIA [None]
  - NEOPLASM MALIGNANT [None]
  - THROMBOCYTOPENIA [None]
  - BONE MARROW FAILURE [None]
